FAERS Safety Report 7173614-6 (Version None)
Quarter: 2010Q4

REPORT INFORMATION
  Report Type: 
  Country: None (occurrence: None)
  Receive Date: 20101219
  Receipt Date: 20100305
  Transmission Date: 20110411
  Serious: No
  Sender: FDA-Public Use
  Company Number: US-AMGEN-KDL394283

PATIENT

DRUGS (20)
  1. ENBREL [Suspect]
     Indication: RHEUMATOID ARTHRITIS
     Dosage: 50 MG, QWK
     Route: 058
     Dates: start: 20100202, end: 20100304
  2. HYDROCHLOROTHIAZIDE [Concomitant]
  3. TRAMADOL HCL [Concomitant]
  4. OLMESARTAN MEDOXOMIL [Concomitant]
  5. CETIRIZINE HYDROCHLORIDE [Concomitant]
  6. NABUMETONE [Concomitant]
  7. POTASSIUM [Concomitant]
  8. FOLIC ACID [Concomitant]
  9. ASCORBIC ACID [Concomitant]
  10. MULTI-VITAMINS [Concomitant]
  11. FLAX SEED OIL [Concomitant]
  12. UNSPECIFIED MEDICATION [Concomitant]
  13. CALCIUM ACETATE [Concomitant]
  14. PREDNISONE [Concomitant]
  15. ALLOPURINOL [Concomitant]
  16. HYDROCODONE [Concomitant]
  17. ERGOCALCIFEROL [Concomitant]
  18. S-ADENOSYLMETHIONINE [Concomitant]
  19. FISH OIL [Concomitant]
  20. COLCHICINE [Concomitant]

REACTIONS (7)
  - INJECTION SITE ERYTHEMA [None]
  - INJECTION SITE REACTION [None]
  - INJECTION SITE SWELLING [None]
  - INJECTION SITE WARMTH [None]
  - MUSCLE SPASMS [None]
  - MUSCLE TWITCHING [None]
  - PARAESTHESIA [None]
